FAERS Safety Report 7962316-1 (Version None)
Quarter: 2011Q4

REPORT INFORMATION
  Report Type: 
  Country: None (occurrence: None)
  Receive Date: 20111207
  Receipt Date: 20111201
  Transmission Date: 20120403
  Serious: Yes (Other)
  Sender: FDA-Public Use
  Company Number: US-PFIZER INC-2011294026

PATIENT
  Sex: Male
  Weight: 103 kg

DRUGS (4)
  1. LATANOPROST [Suspect]
     Dosage: UNK
  2. AMLODIPINE BESYLATE [Suspect]
     Dosage: UNK
  3. QUINAPRIL HCL [Suspect]
     Indication: HYPERTENSION
     Dosage: UNK
  4. ATENOLOL [Suspect]
     Dosage: UNK

REACTIONS (2)
  - HYPERSENSITIVITY [None]
  - RASH ERYTHEMATOUS [None]
